FAERS Safety Report 5689307-8 (Version None)
Quarter: 2008Q1

REPORT INFORMATION
  Report Type: 
  Country: None (occurrence: None)
  Receive Date: 20080331
  Receipt Date: 20080324
  Transmission Date: 20080703
  Serious: Yes (Hospitalization)
  Sender: FDA-Public Use
  Company Number: US-ELI_LILLY_AND_COMPANY-US200711006052

PATIENT
  Sex: Female
  Weight: 51.7 kg

DRUGS (13)
  1. FORTEO [Suspect]
     Indication: OSTEOPOROSIS
     Dosage: 20 UG, DAILY (1/D)
     Dates: start: 20071123
  2. ALBUTEROL [Concomitant]
  3. PREDNISONE [Concomitant]
  4. SPIRIVA [Concomitant]
  5. ADVAIR HFA [Concomitant]
  6. IRON [Concomitant]
  7. NEURONTIN [Concomitant]
  8. LIPITOR [Concomitant]
  9. ALTACE [Concomitant]
  10. PLAVIX [Concomitant]
  11. COLACE [Concomitant]
  12. RESTORIL [Concomitant]
  13. ASPIRIN [Concomitant]

REACTIONS (1)
  - CORONARY ARTERY DISEASE [None]
